FAERS Safety Report 6740255-1 (Version None)
Quarter: 2010Q2

REPORT INFORMATION
  Report Type: 
  Country: None (occurrence: None)
  Receive Date: 20100525
  Receipt Date: 20100520
  Transmission Date: 20101027
  Serious: Yes (Hospitalization)
  Sender: FDA-Public Use
  Company Number: IT-MERCK-1003ITA00015

PATIENT
  Age: 89 Year
  Sex: Female

DRUGS (10)
  1. MODURETIC 5-50 [Suspect]
     Route: 048
     Dates: start: 19950307, end: 20091009
  2. ALBUTEROL [Concomitant]
     Route: 055
     Dates: start: 20000410
  3. AMINOPHYLLINE [Concomitant]
     Route: 042
     Dates: start: 20000410
  4. DILTIAZEM HYDROCHLORIDE [Suspect]
     Route: 048
     Dates: start: 19950307, end: 20091015
  5. INDOBUFEN [Suspect]
     Route: 048
     Dates: start: 19950307, end: 20091017
  6. TIOTROPIUM BROMIDE [Concomitant]
     Route: 048
     Dates: start: 20000410
  7. ISOSORBIDE MONONITRATE [Concomitant]
     Route: 048
     Dates: start: 19950307
  8. FLUTICASONE PROPIONATE [Concomitant]
     Route: 055
     Dates: start: 20000410
  9. DIGOXIN [Suspect]
     Route: 048
     Dates: start: 19950307, end: 20091015
  10. ALLOPURINOL [Concomitant]
     Route: 048
     Dates: start: 20000410

REACTIONS (7)
  - APHASIA [None]
  - ATRIOVENTRICULAR BLOCK SECOND DEGREE [None]
  - BUNDLE BRANCH BLOCK LEFT [None]
  - CEREBRAL ISCHAEMIA [None]
  - CONFUSIONAL STATE [None]
  - DISORIENTATION [None]
  - HYPERKALAEMIA [None]
